FAERS Safety Report 18025772 (Version 2)
Quarter: 2020Q3

REPORT INFORMATION
  Report Type: Spontaneous
  Country: CY (occurrence: CY)
  Receive Date: 20200715
  Receipt Date: 20200930
  Transmission Date: 20201103
  Serious: Yes (Death, Hospitalization)
  Sender: FDA-Public Use
  Company Number: CY-JNJFOC-20200709912

PATIENT
  Age: 83 Year
  Sex: Female

DRUGS (1)
  1. XARELTO [Suspect]
     Active Substance: RIVAROXABAN
     Indication: ATRIAL FIBRILLATION
     Dosage: 15 MG
     Route: 048
     Dates: start: 2017

REACTIONS (4)
  - Carotid artery dissection [Unknown]
  - Asthenia [Unknown]
  - Carotid artery thrombosis [Unknown]
  - Hemiparesis [Unknown]

NARRATIVE: CASE EVENT DATE: 202006
